FAERS Safety Report 5246708-X (Version None)
Quarter: 2007Q1

REPORT INFORMATION
  Report Type: 
  Country: None (occurrence: None)
  Receive Date: 20070216
  Receipt Date: 20070206
  Transmission Date: 20070707
  Serious: Yes (Death)
  Sender: FDA-Public Use
  Company Number: 25272

PATIENT
  Age: 65 Year
  Sex: Male
  Weight: 94.8018 kg

DRUGS (16)
  1. NIASPAN [Suspect]
     Indication: BLOOD CHOLESTEROL INCREASED
     Dosage: 1000 MG QD PO
     Route: 048
     Dates: start: 20060611, end: 20060611
  2. NIASPAN [Suspect]
     Indication: HIGH DENSITY LIPOPROTEIN DECREASED
     Dosage: 1000 MG QD PO
     Route: 048
     Dates: start: 20060611, end: 20060611
  3. WELLBUTRIN [Suspect]
     Indication: DEPRESSION
     Dosage: 300 MG QD PO
     Route: 048
  4. EFFEXOR [Suspect]
     Indication: DEPRESSION
     Dosage: 150 MG DAILY PO
     Route: 048
  5. LORAZEPAM [Suspect]
     Indication: DEPRESSION
     Dosage: 2 MG QD PO
     Route: 048
  6. TRAZODONE HCL [Suspect]
     Indication: DEPRESSION
     Dosage: 200 MG QD PO
     Route: 048
  7. TENORMIN [Suspect]
     Indication: TACHYARRHYTHMIA
     Dosage: 100 MG QD PO
     Route: 048
  8. LANOXIN [Suspect]
     Dosage: 0.375 MG QD PO
     Route: 048
  9. GLUCOPHAGE [Suspect]
     Dosage: 1000 MG BID PO
     Route: 048
  10. GLUCOTROL XL [Suspect]
     Dosage: 10 MG QD PO
     Route: 048
  11. ACTOS [Suspect]
     Dosage: 45 MG QD PO
     Route: 048
  12. TRICOR [Suspect]
     Dosage: 160 MG QD PO
     Route: 048
  13. LANTUS [Suspect]
     Dosage: 70 QD SC
     Route: 058
     Dates: start: 20060609
  14. LIPITOR [Suspect]
  15. VITAMIN CAP [Suspect]
  16. RISPERDAL [Suspect]
     Dosage: 3 MG PO
     Route: 048

REACTIONS (4)
  - BLOOD GLUCOSE INCREASED [None]
  - CARDIO-RESPIRATORY ARREST [None]
  - FLUSHING [None]
  - MYOCARDIAL INFARCTION [None]
